FAERS Safety Report 8877407 (Version 1)
Quarter: 2012Q4

REPORT INFORMATION
  Report Type: Spontaneous
  Country: DK (occurrence: None)
  Receive Date: 20121025
  Receipt Date: 20121025
  Transmission Date: 20130627
  Serious: Yes (Life-Threatening, Other)
  Sender: FDA-Public Use
  Company Number: 2012MA012712

PATIENT
  Age: 19 Year

DRUGS (1)
  1. FLUOXETINE [Suspect]
     Indication: LOW MOOD
     Dosage: 40  MG;UNK;PO
     Route: 048
     Dates: start: 20120820, end: 20120916

REACTIONS (5)
  - Headache [None]
  - Fatigue [None]
  - Anxiety [None]
  - Suicidal ideation [None]
  - Impulse-control disorder [None]
